FAERS Safety Report 6295262-2 (Version None)
Quarter: 2009Q3

REPORT INFORMATION
  Report Type: 
  Country: None (occurrence: None)
  Receive Date: 20090803
  Receipt Date: 20090722
  Transmission Date: 20100115
  Serious: Yes (Hospitalization, Other)
  Sender: FDA-Public Use
  Company Number: FR-ELI_LILLY_AND_COMPANY-FR200905003200

PATIENT
  Age: 26 Year
  Sex: Female

DRUGS (8)
  1. ZYPREXA [Suspect]
     Indication: IMPULSE-CONTROL DISORDER
     Dosage: 5 MG, DAILY (1/D)
     Route: 048
     Dates: start: 20090429, end: 20090513
  2. ZYPREXA [Suspect]
     Dosage: 7.5 MG, DAILY (1/D)
     Route: 048
     Dates: end: 20090501
  3. SEROPLEX [Concomitant]
     Indication: DEPRESSION
     Dosage: 10 MG, DAILY (1/D)
     Route: 048
     Dates: start: 20090501
  4. DEPAKENE [Concomitant]
     Dates: start: 20090501
  5. TEGRETOL [Concomitant]
     Indication: EPILEPSY
     Dosage: 400 MG, DAILY (1/D)
     Route: 048
     Dates: start: 20090501
  6. THERALENE [Concomitant]
     Indication: SEDATIVE THERAPY
     Dosage: 30 D/F, DAILY (1/D)
     Route: 048
     Dates: start: 20090429
  7. ALPRAZOLAM [Concomitant]
     Indication: ANXIETY
     Dosage: UNK, DAILY (1/D)
     Route: 048
     Dates: start: 20090501
  8. MICROPAKINE [Concomitant]
     Indication: EPILEPSY
     Dosage: UNK, DAILY (1/D)
     Route: 048
     Dates: start: 20090501

REACTIONS (3)
  - OEDEMA PERIPHERAL [None]
  - OFF LABEL USE [None]
  - WEIGHT INCREASED [None]
